FAERS Safety Report 14129218 (Version 3)
Quarter: 2017Q4

REPORT INFORMATION
  Report Type: Spontaneous
  Country: US (occurrence: US)
  Receive Date: 20171026
  Receipt Date: 20171207
  Transmission Date: 20180321
  Serious: Yes (Other)
  Sender: FDA-Public Use
  Company Number: US-BEH-2017084613

PATIENT
  Age: 70 Year
  Sex: Male

DRUGS (4)
  1. PRIVIGEN [Suspect]
     Active Substance: HUMAN IMMUNOGLOBULIN G
     Dosage: 35 G, BIWEEKLY
     Route: 065
     Dates: start: 201604
  2. PRIVIGEN [Suspect]
     Active Substance: HUMAN IMMUNOGLOBULIN G
     Dosage: 35 G, EVERY THREE WEEKS
     Route: 065
     Dates: start: 201604, end: 201710
  3. PREDNISONE. [Concomitant]
     Active Substance: PREDNISONE
     Dosage: 20 MG, UNK
     Route: 065
     Dates: start: 201604
  4. PRIVIGEN [Suspect]
     Active Substance: HUMAN IMMUNOGLOBULIN G
     Indication: DERMATOMYOSITIS
     Dosage: 35 G, QW
     Route: 065
     Dates: start: 201604

REACTIONS (6)
  - Haemoglobin decreased [Unknown]
  - Gastrointestinal ulcer [Unknown]
  - Adenocarcinoma of colon [Unknown]
  - Anaemia [Unknown]
  - Blood iron decreased [Unknown]
  - Rectal haemorrhage [Unknown]
